FAERS Safety Report 22526098 (Version 1)
Quarter: 2023Q2

REPORT INFORMATION
  Report Type: Report from Study
  Country: HU (occurrence: HU)
  Receive Date: 20230606
  Receipt Date: 20230606
  Transmission Date: 20230721
  Serious: Yes (Death, Other)
  Sender: FDA-Public Use
  Company Number: HU-002147023-NVSC2023HU024966

PATIENT
  Sex: Female

DRUGS (5)
  1. ESOMEPRAZOLE [Suspect]
     Active Substance: ESOMEPRAZOLE
     Indication: Product used for unknown indication
     Dosage: 40 MILLIGRAM, QD, 40 MG, QD
     Route: 065
     Dates: start: 20150102, end: 20230326
  2. KISQALI [Suspect]
     Active Substance: RIBOCICLIB
     Indication: Breast cancer
     Dosage: UNK
     Route: 065
  3. KISQALI [Suspect]
     Active Substance: RIBOCICLIB
     Dosage: UNK (CYCLE III)
     Route: 065
     Dates: start: 20230213
  4. KISQALI [Suspect]
     Active Substance: RIBOCICLIB
     Dosage: 400 MILLIGRAM, QD, 400 MG, QD
     Route: 048
     Dates: start: 20221220, end: 20230322
  5. SULFASALAZINE [Concomitant]
     Active Substance: SULFASALAZINE
     Indication: Product used for unknown indication
     Dosage: 1000 MILLIGRAM, QD, 500 MG, BID
     Route: 065
     Dates: start: 20080101, end: 20230326

REACTIONS (4)
  - Cardiac arrest [Fatal]
  - Metastases to bone [Unknown]
  - Anaemia [Unknown]
  - Dyspnoea [Not Recovered/Not Resolved]
